FAERS Safety Report 4489389-5 (Version None)
Quarter: 2004Q4

REPORT INFORMATION
  Report Type: 
  Country: None (occurrence: None)
  Receive Date: 20041101
  Receipt Date: 20041020
  Transmission Date: 20050328
  Serious: Yes (Death, Hospitalization)
  Sender: FDA-Public Use
  Company Number: FR-ABBOTT-04P-056-0278578-00

PATIENT
  Age: 47 Year
  Sex: Male
  Weight: 65 kg

DRUGS (8)
  1. RITONAVIR SOFT GELATIN CAPSULES [Suspect]
     Indication: HIV INFECTION
     Route: 048
     Dates: start: 19980630
  2. INDINAVIR [Suspect]
     Indication: HIV INFECTION
     Route: 048
     Dates: start: 19980630
  3. ZIDOVUDINE W/LAMIVUDINE [Suspect]
     Indication: HIV INFECTION
     Route: 048
     Dates: start: 19980630
  4. IRESSA [Suspect]
     Indication: LUNG NEOPLASM MALIGNANT
     Route: 048
     Dates: start: 20040716
  5. CARBOPLATIN [Concomitant]
     Indication: LUNG NEOPLASM MALIGNANT
     Dates: start: 20040201
  6. PACLITAXEL [Concomitant]
     Indication: LUNG NEOPLASM MALIGNANT
     Dates: start: 20040201
  7. NAVELBINE [Concomitant]
     Indication: LUNG NEOPLASM MALIGNANT
     Dates: start: 20040201
  8. GEMCITABINE HYDROCHLORIDE [Concomitant]
     Indication: LUNG NEOPLASM MALIGNANT
     Dates: start: 20040201

REACTIONS (4)
  - CARDIAC ARREST [None]
  - DYSPNOEA EXACERBATED [None]
  - PNEUMOCYSTIS CARINII PNEUMONIA [None]
  - PNEUMONIA [None]
